FAERS Safety Report 24789115 (Version 2)
Quarter: 2025Q1

REPORT INFORMATION
  Report Type: Spontaneous
  Country: US (occurrence: US)
  Receive Date: 20241230
  Receipt Date: 20250102
  Transmission Date: 20250409
  Serious: No
  Sender: ELI LILLY AND COMPANY
  Company Number: US-ELI_LILLY_AND_COMPANY-US202412017972

PATIENT
  Sex: Female

DRUGS (5)
  1. MOUNJARO [Suspect]
     Active Substance: TIRZEPATIDE
     Indication: Glucose tolerance impaired
     Route: 065
     Dates: start: 2023
  2. MOUNJARO [Suspect]
     Active Substance: TIRZEPATIDE
     Indication: Glucose tolerance impaired
     Route: 065
  3. MOUNJARO [Suspect]
     Active Substance: TIRZEPATIDE
     Indication: Glucose tolerance impaired
     Route: 065
  4. MOUNJARO [Suspect]
     Active Substance: TIRZEPATIDE
     Indication: Glucose tolerance impaired
     Route: 065
  5. MOUNJARO [Suspect]
     Active Substance: TIRZEPATIDE
     Indication: Glucose tolerance impaired
     Route: 065

REACTIONS (9)
  - Off label use [Unknown]
  - Overdose [Unknown]
  - Headache [Unknown]
  - Nervousness [Unknown]
  - Bruxism [Unknown]
  - Fatigue [Unknown]
  - Diarrhoea [Recovering/Resolving]
  - Eructation [Unknown]
  - Nausea [Unknown]

NARRATIVE: CASE EVENT DATE: 20230101
